FAERS Safety Report 6806681-7 (Version None)
Quarter: 2010Q2

REPORT INFORMATION
  Report Type: 
  Country: None (occurrence: None)
  Receive Date: 20100629
  Receipt Date: 20080331
  Transmission Date: 20101027
  Serious: No
  Sender: FDA-Public Use
  Company Number: US-PFIZER INC-2008029103

PATIENT
  Age: 56 Year
  Sex: Female
  Weight: 54.545 kg

DRUGS (5)
  1. ALPRAZOLAM [Suspect]
     Indication: SLEEP DISORDER
     Dates: start: 20080101
  2. TRILEPTAL [Concomitant]
  3. LAMICTAL [Concomitant]
  4. PROTONIX [Concomitant]
  5. LIPITOR [Concomitant]

REACTIONS (2)
  - DRUG EFFECT DECREASED [None]
  - WEIGHT INCREASED [None]
